FAERS Safety Report 7225441-9 (Version None)
Quarter: 2011Q1

REPORT INFORMATION
  Report Type: 
  Country: None (occurrence: None)
  Receive Date: 20110113
  Receipt Date: 20101028
  Transmission Date: 20110831
  Serious: No
  Sender: FDA-Public Use
  Company Number: US-NOVEN-10US001403

PATIENT
  Sex: Male

DRUGS (3)
  1. FENTANYL-100 [Suspect]
     Indication: BACK PAIN
  2. FENTANYL-100 [Suspect]
     Indication: OSTEOPOROSIS
     Dosage: 100 MCG/HR, EVERY 72 HOURS
     Route: 062
     Dates: start: 20101020
  3. UNKNOWN [Concomitant]

REACTIONS (4)
  - APPLICATION SITE ERYTHEMA [None]
  - PRODUCT QUALITY ISSUE [None]
  - DRUG ADMINISTRATION ERROR [None]
  - APPLICATION SITE PRURITUS [None]
